FAERS Safety Report 4608843-6 (Version None)
Quarter: 2005Q1

REPORT INFORMATION
  Report Type: 
  Country: None (occurrence: None)
  Receive Date: 20050315
  Receipt Date: 20050302
  Transmission Date: 20050727
  Serious: Yes (Hospitalization)
  Sender: FDA-Public Use
  Company Number: FR-GLAXOSMITHKLINE-B0373512A

PATIENT
  Age: 75 Year
  Sex: Female
  Weight: 40 kg

DRUGS (5)
  1. DEROXAT [Suspect]
     Indication: ILL-DEFINED DISORDER
     Dosage: 20MG PER DAY
     Route: 048
     Dates: start: 20050108, end: 20050110
  2. MOTILIUM [Suspect]
     Dosage: 10MG PER DAY
     Route: 048
     Dates: end: 20050118
  3. ROCEPHIN [Suspect]
     Dosage: 2G PER DAY
     Route: 042
     Dates: start: 20041225, end: 20050117
  4. COVERSYL [Suspect]
     Dosage: 2MG PER DAY
     Route: 048
     Dates: end: 20050119
  5. OMEPRAZOLE [Suspect]
     Dosage: 20MG PER DAY
     Route: 048
     Dates: end: 20050119

REACTIONS (3)
  - AGRANULOCYTOSIS [None]
  - BONE MARROW DEPRESSION [None]
  - PYREXIA [None]
